FAERS Safety Report 4718279-5 (Version None)
Quarter: 2005Q3

REPORT INFORMATION
  Report Type: 
  Country: None (occurrence: None)
  Receive Date: 20050718
  Receipt Date: 20050106
  Transmission Date: 20060218
  Serious: No
  Sender: FDA-Public Use
  Company Number: 2005000039

PATIENT
  Age: 74 Year
  Sex: Female

DRUGS (10)
  1. TARCEVA [Suspect]
     Indication: NON-SMALL CELL LUNG CANCER
     Dosage: 150 MG (QD), ORAL
     Route: 048
     Dates: start: 20041204
  2. TARCEVA [Suspect]
     Indication: NON-SMALL CELL LUNG CANCER
     Dosage: 100 MG (QD), ORAL
     Route: 048
  3. PROCHLORPERAZINE [Concomitant]
  4. FLUDROCORTISONE [Concomitant]
  5. TRIMETHOPRIM [Concomitant]
  6. OXYBUTYNIN [Concomitant]
  7. LEXAPRO [Concomitant]
  8. ZOLPIDEM TARTRATE [Concomitant]
  9. TYLENOL PM [Concomitant]
  10. ESTRADIOL [Concomitant]

REACTIONS (7)
  - ANOREXIA [None]
  - DIARRHOEA [None]
  - DIZZINESS [None]
  - FALL [None]
  - FATIGUE [None]
  - RASH [None]
  - WEIGHT DECREASED [None]
